FAERS Safety Report 10715883 (Version 1)
Quarter: 2015Q1

REPORT INFORMATION
  Report Type: Spontaneous
  Country: US (occurrence: None)
  Receive Date: 20150109
  Receipt Date: 20150109
  Transmission Date: 20150721
  Serious: Yes (Death)
  Sender: FDA-Public Use
  Company Number: 2014PROUSA03619

PATIENT
  Age: 76 Year
  Sex: Male
  Weight: 90.7 kg

DRUGS (1)
  1. PROVENGE [Suspect]
     Active Substance: SIPULEUCEL-T
     Indication: PROSTATE CANCER METASTATIC
     Dosage: 250 ML, SINGLE, INTRAVENOUS?
     Route: 042
     Dates: start: 20120720, end: 20120720

REACTIONS (2)
  - Tremor [None]
  - Disease progression [None]

NARRATIVE: CASE EVENT DATE: 20140113
